FAERS Safety Report 8464545-X (Version None)
Quarter: 2012Q2

REPORT INFORMATION
  Report Type: 
  Country: None (occurrence: None)
  Receive Date: 20120323
  Receipt Date: 20111014
  Transmission Date: 20120825
  Serious: Yes (Other)
  Sender: FDA-Public Use
  Company Number: 163-21880-11101904

PATIENT
  Age: 74 Year
  Sex: Female
  Weight: 56.6996 kg

DRUGS (2)
  1. REVLIMID [Suspect]
     Indication: MULTIPLE MYELOMA
     Dosage: 10 MG, DAILY FOR 21 DAYS, PO ; 10 MG, DAILY FOR 21 DAYS, PO
     Route: 048
     Dates: start: 20080611, end: 20100104
  2. REVLIMID [Suspect]
     Indication: MULTIPLE MYELOMA
     Dosage: 10 MG, DAILY FOR 21 DAYS, PO ; 10 MG, DAILY FOR 21 DAYS, PO
     Route: 048
     Dates: start: 20100527

REACTIONS (2)
  - ANAEMIA [None]
  - THROMBOCYTOPENIA [None]
